FAERS Safety Report 23755614 (Version 1)
Quarter: 2024Q2

REPORT INFORMATION
  Report Type: Spontaneous
  Country: CN (occurrence: CN)
  Receive Date: 20240418
  Receipt Date: 20240418
  Transmission Date: 20240716
  Serious: Yes (Hospitalization, Other)
  Sender: FDA-Public Use
  Company Number: CN-CHEPLA-2024004653

PATIENT
  Age: 84 Year
  Sex: Male
  Weight: 70 kg

DRUGS (2)
  1. CAPECITABINE [Suspect]
     Active Substance: CAPECITABINE
     Indication: Gastric cancer
     Dosage: 1 G BID; APPROVAL NO. GYZZ H20073023 ?DAILY DOSE: 2 GRAM
     Route: 048
     Dates: start: 20240307, end: 20240307
  2. SINTILIMAB [Suspect]
     Active Substance: SINTILIMAB
     Indication: Pericardial effusion
     Dosage: 200 MG 1 TIME EVERY 21 DAYS; ROA: IV DRIP, APPROVAL NO. GYZZ S20180016
     Route: 042
     Dates: start: 20240307, end: 20240307

REACTIONS (2)
  - Thrombocytopenia [Recovering/Resolving]
  - Hypothyroidism [Recovering/Resolving]

NARRATIVE: CASE EVENT DATE: 20240326
